FAERS Safety Report 10475270 (Version 2)
Quarter: 2015Q1

REPORT INFORMATION
  Report Type: Spontaneous
  Country: JP (occurrence: JP)
  Receive Date: 20140925
  Receipt Date: 20150105
  Transmission Date: 20150720
  Serious: Yes (Other)
  Sender: FDA-Public Use
  Company Number: PHHY2014JP121438

PATIENT
  Age: 72 Year
  Sex: Female

DRUGS (1)
  1. FEMARA [Suspect]
     Active Substance: LETROZOLE
     Indication: BREAST CANCER
     Dosage: 2.5 MG, DAILY
     Route: 048
     Dates: start: 20100210

REACTIONS (4)
  - Dizziness [Recovered/Resolved]
  - Visual impairment [Unknown]
  - Age-related macular degeneration [Recovering/Resolving]
  - Ophthalmic herpes zoster [Unknown]

NARRATIVE: CASE EVENT DATE: 20100213
